FAERS Safety Report 15395103 (Version 1)
Quarter: 2018Q3

REPORT INFORMATION
  Report Type: Spontaneous
  Country: CN (occurrence: CN)
  Receive Date: 20180918
  Receipt Date: 20180918
  Transmission Date: 20181010
  Serious: Yes (Hospitalization, Other)
  Sender: FDA-Public Use
  Company Number: CN-ASTELLAS-2018US040833

PATIENT
  Age: 53 Year
  Sex: Male
  Weight: 59 kg

DRUGS (4)
  1. RAPAMYCIN [Suspect]
     Active Substance: SIROLIMUS
     Indication: LIVER TRANSPLANT
     Dosage: UNK UNK, UNKNOWN FREQ.
     Route: 065
  2. TACROLIMUS. [Suspect]
     Active Substance: TACROLIMUS
     Indication: LIVER TRANSPLANT
     Dosage: 1.5 ? 2.5 MG, EVERY 12 HOURS
     Route: 065
  3. CYCLOSPORIN A [Suspect]
     Active Substance: CYCLOSPORINE
     Indication: LIVER TRANSPLANT
     Dosage: UNK UNK, UNKNOWN FREQ.
     Route: 065
  4. PREDNISONE. [Concomitant]
     Active Substance: PREDNISONE
     Indication: LIVER TRANSPLANT
     Dosage: UNK UNK, UNKNOWN FREQ.
     Route: 065

REACTIONS (5)
  - Neurotoxicity [Recovering/Resolving]
  - Hypertrophic cardiomyopathy [Recovering/Resolving]
  - Gastrointestinal disorder [Recovering/Resolving]
  - Renal impairment [Recovering/Resolving]
  - Cardiac failure [Recovering/Resolving]
